FAERS Safety Report 18379000 (Version 1)
Quarter: 2020Q4

REPORT INFORMATION
  Report Type: Report from Study
  Country: IT (occurrence: IT)
  Receive Date: 20201013
  Receipt Date: 20201013
  Transmission Date: 20210114
  Serious: Yes (Hospitalization)
  Sender: FDA-Public Use
  Company Number: IT-DSJP-DSE-2020-129386

PATIENT
  Age: 61 Year
  Sex: Male

DRUGS (3)
  1. LEXOTAN [Suspect]
     Active Substance: BROMAZEPAM
     Indication: PRODUCT USED FOR UNKNOWN INDICATION
     Dosage: 20 ML, TOTAL
     Route: 048
     Dates: start: 20200818, end: 20200818
  2. SOTALEX [Suspect]
     Active Substance: SOTALOL
     Indication: PRODUCT USED FOR UNKNOWN INDICATION
     Dosage: 80 MG
     Route: 048
     Dates: start: 20200815, end: 20200818
  3. OLPRESS [Suspect]
     Active Substance: OLMESARTAN MEDOXOMIL
     Indication: PRODUCT USED FOR UNKNOWN INDICATION
     Dosage: 10 MG
     Route: 048
     Dates: start: 20200815, end: 20200818

REACTIONS (9)
  - Neutrophilia [Recovering/Resolving]
  - Leukocytosis [Recovering/Resolving]
  - Apraxia [Recovering/Resolving]
  - Sinus bradycardia [Recovering/Resolving]
  - Drug abuse [Recovering/Resolving]
  - Gastritis erosive [Recovering/Resolving]
  - Blood creatine phosphokinase increased [Recovering/Resolving]
  - Suicide attempt [Recovering/Resolving]
  - C-reactive protein increased [Recovering/Resolving]

NARRATIVE: CASE EVENT DATE: 20200818
